FAERS Safety Report 7136722-1 (Version None)
Quarter: 2010Q4

REPORT INFORMATION
  Report Type: 
  Country: None (occurrence: None)
  Receive Date: 20101118
  Receipt Date: 20101108
  Transmission Date: 20110411
  Serious: Yes (Other)
  Sender: FDA-Public Use
  Company Number: 021869

PATIENT
  Age: 11 Year
  Sex: Female
  Weight: 27 kg

DRUGS (5)
  1. LEVETIRACETAM [Suspect]
     Indication: PROPHYLAXIS
     Dosage: (250 MG BID)
  2. OMEPRAZOLE [Concomitant]
  3. DEXAMETHASON /00016 [Concomitant]
  4. MAXIPIME [Concomitant]
  5. IMURAN [Concomitant]

REACTIONS (4)
  - BRADYCARDIA [None]
  - IMMUNOSUPPRESSION [None]
  - MYELOPROLIFERATIVE DISORDER [None]
  - SINUS ARRHYTHMIA [None]
